FAERS Safety Report 10639100 (Version 12)
Quarter: 2015Q4

REPORT INFORMATION
  Report Type: Report from Study
  Country: GB (occurrence: GB)
  Receive Date: 20141208
  Receipt Date: 20151113
  Transmission Date: 20160304
  Serious: Yes (Hospitalization)
  Sender: FDA-Public Use
  Company Number: GB-B.I. PHARMACEUTICALS,INC./RIDGEFIELD-2014-BI-56954BI

PATIENT
  Age: 76 Year
  Sex: Male
  Weight: 98.6 kg

DRUGS (18)
  1. HUMULIN NOS [Concomitant]
     Active Substance: INSULIN HUMAN
     Indication: TYPE 2 DIABETES MELLITUS
     Dosage: 20 U
     Route: 058
     Dates: start: 20130517
  2. TIOTROPIUM [Concomitant]
     Active Substance: TIOTROPIUM
     Indication: CHRONIC OBSTRUCTIVE PULMONARY DISEASE
     Dosage: 1 ANZ
     Route: 055
     Dates: start: 20130910
  3. DIGOXIN. [Concomitant]
     Active Substance: DIGOXIN
     Indication: ATRIAL FIBRILLATION
     Dosage: 62.5 MCG
     Route: 048
     Dates: start: 20020915
  4. PRAVASTATIN [Concomitant]
     Active Substance: PRAVASTATIN\PRAVASTATIN SODIUM
     Indication: BLOOD CHOLESTEROL INCREASED
     Dosage: 40 MG
     Route: 048
     Dates: start: 20020109
  5. RANITADINE [Concomitant]
     Indication: PROPHYLAXIS
     Route: 048
     Dates: start: 20141113
  6. ASPIRIN. [Concomitant]
     Active Substance: ASPIRIN
     Indication: MYOCARDIAL ISCHAEMIA
     Dosage: 75 MG
     Route: 048
     Dates: start: 20020109
  7. ALLOPURINOL. [Concomitant]
     Active Substance: ALLOPURINOL
     Indication: GOUT
     Dosage: 100 MG
     Route: 048
     Dates: start: 20020103
  8. HUMALOG [Concomitant]
     Active Substance: INSULIN LISPRO
     Indication: TYPE 2 DIABETES MELLITUS
     Dosage: 20 U
     Route: 058
     Dates: start: 20101023
  9. AMLODIPINE [Concomitant]
     Active Substance: AMLODIPINE BESYLATE
     Indication: HYPERTENSION
     Dosage: 5 MG
     Route: 048
     Dates: start: 20130621
  10. SODIUM BICARBONATE. [Concomitant]
     Active Substance: SODIUM BICARBONATE
     Indication: RENAL DISORDER
     Dosage: 2 G
     Route: 048
     Dates: start: 20020109
  11. BISOPROLOL [Concomitant]
     Active Substance: BISOPROLOL
     Indication: HYPERTENSION
     Dosage: 10 MG
     Route: 048
     Dates: start: 20020103
  12. LINAGLIPTIN [Suspect]
     Active Substance: LINAGLIPTIN
     Indication: TYPE 2 DIABETES MELLITUS
     Dosage: 5 MG
     Route: 048
     Dates: start: 20140327
  13. CALCIUM RESONIUM [Concomitant]
     Indication: HYPERKALAEMIA
     Dosage: DOSE PER APPLICATION AND DAILY DOSE : 1 SPOON FULL
     Route: 048
     Dates: start: 20021206
  14. E45 [Concomitant]
     Active Substance: LANOLIN\LIGHT MINERAL OIL\PARAFFIN
     Indication: ECZEMA
     Route: 061
     Dates: start: 20060905
  15. PAROXETINE [Concomitant]
     Active Substance: PAROXETINE\PAROXETINE HYDROCHLORIDE
     Indication: ANXIETY
     Dosage: 20 MG
     Route: 048
     Dates: start: 20020109
  16. VENTOLIN [Concomitant]
     Active Substance: ALBUTEROL SULFATE
     Indication: CHRONIC OBSTRUCTIVE PULMONARY DISEASE
     Dosage: 8 PUF
     Route: 055
     Dates: start: 20130910
  17. HYPROMELLOSE [Concomitant]
     Active Substance: HYPROMELLOSES
     Indication: DRY EYE
     Dosage: 6 ANZ
     Route: 061
     Dates: start: 20041105
  18. GTN [Concomitant]
     Active Substance: NITROGLYCERIN
     Indication: ANGINA PECTORIS
     Dosage: FORMULATION: SPRAY, DAILY DOSE: 2 PUFFS PRN
     Route: 060
     Dates: start: 20110711

REACTIONS (2)
  - Prostate cancer metastatic [Unknown]
  - Back pain [Unknown]

NARRATIVE: CASE EVENT DATE: 201409
